FAERS Safety Report 10866464 (Version 1)
Quarter: 2015Q1

REPORT INFORMATION
  Report Type: Spontaneous
  Country: US (occurrence: None)
  Receive Date: 20150220
  Receipt Date: 20150220
  Transmission Date: 20150721
  Serious: Yes (Disabling)
  Sender: FDA-Public Use
  Company Number: None

PATIENT
  Age: 53 Year
  Sex: Male
  Weight: 70.31 kg

DRUGS (21)
  1. BELSOMRA [Suspect]
     Active Substance: SUVOREXANT
     Indication: INSOMNIA
     Route: 048
  2. INDERAL [Concomitant]
     Active Substance: PROPRANOLOL HYDROCHLORIDE
  3. SINGULAIR [Concomitant]
     Active Substance: MONTELUKAST SODIUM
  4. TRAZODONE [Concomitant]
     Active Substance: TRAZODONE HYDROCHLORIDE
  5. VITAMIN D [Concomitant]
     Active Substance: CHOLECALCIFEROL
  6. CQ-10 [Concomitant]
  7. PROTONIX [Concomitant]
     Active Substance: PANTOPRAZOLE SODIUM
  8. AMBIEN CR [Concomitant]
     Active Substance: ZOLPIDEM TARTRATE
  9. ASMANEX INHALER [Concomitant]
  10. ATIVAN [Concomitant]
     Active Substance: LORAZEPAM
  11. ZTEST ANABOLIC TRIGGER [Concomitant]
  12. COMBIVENT RESPIMAT [Concomitant]
     Active Substance: ALBUTEROL SULFATE\IPRATROPIUM BROMIDE
  13. SUPER B-COMPLEX [Concomitant]
  14. NEURONTIN [Concomitant]
     Active Substance: GABAPENTIN
  15. TRAMADOL [Concomitant]
     Active Substance: TRAMADOL
  16. CLARINEX [Concomitant]
     Active Substance: DESLORATADINE
  17. NULEV [Concomitant]
     Active Substance: HYOSCYAMINE SULFATE
  18. METHADONE [Concomitant]
     Active Substance: METHADONE HYDROCHLORIDE
  19. ZOFRAN [Concomitant]
     Active Substance: ONDANSETRON HYDROCHLORIDE
  20. ENTERAGRAM [Concomitant]
  21. TEST600 ANABOLIC [Concomitant]

REACTIONS (13)
  - Somnolence [None]
  - Panic attack [None]
  - Claustrophobia [None]
  - Chest discomfort [None]
  - Confusional state [None]
  - Irritability [None]
  - Feeding disorder [None]
  - Hyperhidrosis [None]
  - Anxiety [None]
  - Chest pain [None]
  - Visual impairment [None]
  - Blood glucose increased [None]
  - Dyspnoea [None]

NARRATIVE: CASE EVENT DATE: 20150209
